FAERS Safety Report 14421292 (Version 5)
Quarter: 2018Q1

REPORT INFORMATION
  Report Type: Spontaneous
  Country: US (occurrence: US)
  Receive Date: 20180122
  Receipt Date: 20180309
  Transmission Date: 20180509
  Serious: No
  Sender: FDA-Public Use
  Company Number: US-BIOGEN-2018BI00511735

PATIENT
  Age: 59 Year
  Sex: Male

DRUGS (1)
  1. TYSABRI [Suspect]
     Active Substance: NATALIZUMAB
     Indication: MULTIPLE SCLEROSIS
     Dosage: INFUSED OVER 1 HOUR
     Route: 042
     Dates: start: 20160912

REACTIONS (9)
  - Dysarthria [Recovered/Resolved]
  - Balance disorder [Recovered/Resolved]
  - Tinnitus [Recovered/Resolved]
  - Visual impairment [Recovered/Resolved]
  - Drug dose omission [Recovered/Resolved]
  - Fall [Recovered/Resolved]
  - Cognitive disorder [Recovered/Resolved]
  - Disturbance in attention [Recovered/Resolved]
  - Gait disturbance [Recovered/Resolved]

NARRATIVE: CASE EVENT DATE: 201801
